FAERS Safety Report 24165618 (Version 1)
Quarter: 2024Q3

REPORT INFORMATION
  Report Type: Spontaneous
  Country: KR (occurrence: KR)
  Receive Date: 20240802
  Receipt Date: 20240802
  Transmission Date: 20241016
  Serious: Yes (Hospitalization, Other)
  Sender: GLAXOSMITHKLINE
  Company Number: KR-TAKEDA-2024TUS076152

PATIENT

DRUGS (5)
  1. ZEJULA [Suspect]
     Active Substance: NIRAPARIB
     Indication: Ovarian cancer stage II
     Dosage: 200 MG(200 MILLIGRAM)
     Route: 048
     Dates: start: 20230116
  2. ZEJULA [Suspect]
     Active Substance: NIRAPARIB
     Dosage: 100 MG(100 MILLIGRAM)
     Route: 048
     Dates: start: 20230214, end: 20230302
  3. ZEJULA [Suspect]
     Active Substance: NIRAPARIB
     Dosage: UNK
     Route: 048
  4. ZEJULA [Suspect]
     Active Substance: NIRAPARIB
     Dosage: UNK
     Route: 048
  5. LYNPARZA [Concomitant]
     Active Substance: OLAPARIB
     Indication: Product used for unknown indication
     Dosage: UNK
     Route: 065
     Dates: start: 202310

REACTIONS (7)
  - Haemoglobin abnormal [Unknown]
  - Platelet count abnormal [Unknown]
  - Lymphocele [Unknown]
  - Pyrexia [Unknown]
  - Spinal compression fracture [Unknown]
  - COVID-19 [Unknown]
  - Osteoporosis [Unknown]

NARRATIVE: CASE EVENT DATE: 20230214
